FAERS Safety Report 20022510 (Version 2)
Quarter: 2021Q4

REPORT INFORMATION
  Report Type: Spontaneous
  Country: JP (occurrence: None)
  Receive Date: 20211102
  Receipt Date: 20211119
  Transmission Date: 20220303
  Serious: Yes (Other)
  Sender: FDA-Public Use
  Company Number: JP-Merck Healthcare KGaA-9275126

PATIENT
  Age: 38 Year
  Sex: Female
  Weight: 51 kg

DRUGS (4)
  1. OVIDREL [Suspect]
     Active Substance: CHORIOGONADOTROPIN ALFA
     Indication: Controlled ovarian stimulation
     Dosage: 1 AMPULE
  2. FOLLITROPIN [Concomitant]
     Active Substance: FOLLITROPIN
     Indication: Controlled ovarian stimulation
     Dosage: 1700 IU
  3. MENOPAUSAL GONADOTROPIN [Concomitant]
     Indication: Controlled ovarian stimulation
     Dosage: 1700 IU
  4. DIENOGEST [Concomitant]
     Active Substance: DIENOGEST
     Indication: Endometriosis

REACTIONS (1)
  - Pneumothorax [Recovering/Resolving]
